FAERS Safety Report 10530558 (Version 3)
Quarter: 2014Q4

REPORT INFORMATION
  Report Type: Spontaneous
  Country: US (occurrence: US)
  Receive Date: 20141021
  Receipt Date: 20141202
  Transmission Date: 20150528
  Serious: Yes (Hospitalization, Other)
  Sender: FDA-Public Use
  Company Number: US-PFIZER INC-2014285741

PATIENT
  Age: 65 Year
  Sex: Female
  Weight: 91 kg

DRUGS (12)
  1. VFEND [Suspect]
     Active Substance: VORICONAZOLE
     Indication: FUNGAL INFECTION
     Dosage: 300 MG, 2X/DAY (1-200 MG + 2-50 MG) (AM/PM)
     Route: 048
     Dates: start: 201404
  2. CELLCEPT [Concomitant]
     Active Substance: MYCOPHENOLATE MOFETIL\MYCOPHENOLATE MOFETIL HYDROCHLORIDE
     Dosage: 2-500 MG TABLET DAILY AM, 1-500 MG + 1-250 MG PM
  3. BACTRIM [Concomitant]
     Active Substance: SULFAMETHOXAZOLE\TRIMETHOPRIM
     Dosage: 1 DF, 2X/DAY SATURDAYS AND SUNDAY ONLY
  4. ZOVIRAX [Concomitant]
     Active Substance: ACYCLOVIR
     Dosage: 400 MG, 3X/DAY
  5. VFEND [Suspect]
     Active Substance: VORICONAZOLE
     Indication: PULMONARY MYCOSIS
     Dosage: 200 MG, UNK
  6. SANDIMMUNE [Concomitant]
     Active Substance: CYCLOSPORINE
     Dosage: 125 MG, 2X/DAY
  7. VFEND [Suspect]
     Active Substance: VORICONAZOLE
     Dosage: 50 MG, UNK
  8. ACTIGALL [Concomitant]
     Active Substance: URSODIOL
     Dosage: 300 MG, 2X/DAY
  9. ZOFRAN [Concomitant]
     Active Substance: ONDANSETRON HYDROCHLORIDE
     Indication: NAUSEA
     Dosage: 8 MG, AS NEEDED
  10. CIPRO [Concomitant]
     Active Substance: CIPROFLOXACIN HYDROCHLORIDE
  11. PEPCID [Concomitant]
     Active Substance: FAMOTIDINE
     Dosage: 40 MG, 2X/DAY
  12. ATIVAN [Concomitant]
     Active Substance: LORAZEPAM
     Indication: NAUSEA
     Dosage: 1 MG, AS NEEDED

REACTIONS (2)
  - Bone marrow transplant [Not Recovered/Not Resolved]
  - Stem cell transplant [Not Recovered/Not Resolved]

NARRATIVE: CASE EVENT DATE: 20140919
